FAERS Safety Report 25421304 (Version 2)
Quarter: 2025Q2

REPORT INFORMATION
  Report Type: Spontaneous
  Country: US (occurrence: US)
  Receive Date: 20250611
  Receipt Date: 20250623
  Transmission Date: 20250716
  Serious: Yes (Death, Hospitalization, Other)
  Sender: ROCHE
  Company Number: US-ROCHE-10000292942

PATIENT
  Age: 33 Year
  Sex: Male

DRUGS (3)
  1. XOLAIR [Suspect]
     Active Substance: OMALIZUMAB
     Indication: Product used for unknown indication
     Dosage: INJECT ONE INJECTION 150 MG/ML
     Route: 058
     Dates: start: 20250424
  2. XOLAIR [Suspect]
     Active Substance: OMALIZUMAB
  3. STERILE WATER FOR INJECTION [Concomitant]
     Active Substance: WATER

REACTIONS (3)
  - Recurrent cancer [Unknown]
  - Gastrointestinal haemorrhage [Unknown]
  - Death [Fatal]

NARRATIVE: CASE EVENT DATE: 20250525
